FAERS Safety Report 14747367 (Version 1)
Quarter: 2018Q2

REPORT INFORMATION
  Report Type: Spontaneous
  Country: US (occurrence: US)
  Receive Date: 20180411
  Receipt Date: 20180411
  Transmission Date: 20180711
  Serious: No
  Sender: FDA-Public Use
  Company Number: US-TEVA-2018-US-875251

PATIENT
  Sex: Female

DRUGS (1)
  1. ACTIQ [Suspect]
     Active Substance: FENTANYL CITRATE
     Indication: CANCER PAIN
     Dosage: EVERY FOUR HOURS AS NEEDED
     Route: 065
     Dates: start: 20180317

REACTIONS (2)
  - Gingival disorder [Not Recovered/Not Resolved]
  - Gingival erosion [Not Recovered/Not Resolved]

NARRATIVE: CASE EVENT DATE: 20180317
